FAERS Safety Report 8290117-6 (Version None)
Quarter: 2012Q2

REPORT INFORMATION
  Report Type: 
  Country: None (occurrence: None)
  Receive Date: 20120417
  Receipt Date: 20120403
  Transmission Date: 20120825
  Serious: Yes (Hospitalization)
  Sender: FDA-Public Use
  Company Number: PHEH2012US007963

PATIENT
  Sex: Female

DRUGS (1)
  1. ILARIS [Suspect]
     Dosage: 90 MG, UNK
     Route: 058
     Dates: start: 20120314

REACTIONS (2)
  - PAPILLOEDEMA [None]
  - HEADACHE [None]
